FAERS Safety Report 4924683-2 (Version None)
Quarter: 2006Q1

REPORT INFORMATION
  Report Type: 
  Country: None (occurrence: None)
  Receive Date: 20060222
  Receipt Date: 20060206
  Transmission Date: 20060701
  Serious: Yes (Hospitalization)
  Sender: FDA-Public Use
  Company Number: MK200602-0131-1

PATIENT
  Age: 57 Year
  Sex: Female

DRUGS (3)
  1. HYDROMORPHONE HCL [Suspect]
     Indication: PAIN
     Dosage: 150MG, PER HOUR
  2. MELOXICAM [Concomitant]
  3. CLONAZEPAM [Concomitant]

REACTIONS (6)
  - AGITATION [None]
  - CRYING [None]
  - DELIRIUM [None]
  - DRUG INEFFECTIVE [None]
  - HALLUCINATION [None]
  - PAIN [None]
